FAERS Safety Report 4946937-6 (Version None)
Quarter: 2006Q1

REPORT INFORMATION
  Report Type: 
  Country: None (occurrence: None)
  Receive Date: 20060313
  Receipt Date: 20060227
  Transmission Date: 20060701
  Serious: Yes (Death, Other)
  Sender: FDA-Public Use
  Company Number: 2006016816

PATIENT
  Age: 58 Year
  Sex: Male

DRUGS (9)
  1. SILDENAFIL CITRATE [Suspect]
     Indication: PULMONARY HYPERTENSION
     Dosage: 200 MG (50 MG, 4 IN 1 D), ORAL
     Route: 048
  2. GEMFIBROZIL [Concomitant]
  3. FUROSEMIDE [Concomitant]
  4. POTASSIUM CHLORIDE [Concomitant]
  5. WARFARIN SODIUM [Concomitant]
  6. ATROVENT [Concomitant]
  7. ADVAIR DISKUS 100/50 [Concomitant]
  8. PERCOCET [Concomitant]
  9. SPIRONOLACTONE [Concomitant]

REACTIONS (11)
  - ASTHENIA [None]
  - BLOOD CHLORIDE DECREASED [None]
  - BLOOD PRESSURE IMMEASURABLE [None]
  - BLOOD SODIUM DECREASED [None]
  - BRADYCARDIA [None]
  - ELECTROMECHANICAL DISSOCIATION [None]
  - FALL [None]
  - LUNG NEOPLASM MALIGNANT [None]
  - PULSE ABSENT [None]
  - RESUSCITATION [None]
  - SYNCOPE [None]
